FAERS Safety Report 23603492 (Version 1)
Quarter: 2024Q1

REPORT INFORMATION
  Report Type: Spontaneous
  Country: AU (occurrence: AU)
  Receive Date: 20240307
  Receipt Date: 20240307
  Transmission Date: 20240410
  Serious: Yes (Hospitalization, Other)
  Sender: FDA-Public Use
  Company Number: AU-GLAXOSMITHKLINE-AUCH2024APC011816

PATIENT

DRUGS (17)
  1. ACETAMINOPHEN [Suspect]
     Active Substance: ACETAMINOPHEN
     Indication: Umbilical hernia
     Dosage: 2 DF, QID
  2. ACETAMINOPHEN [Suspect]
     Active Substance: ACETAMINOPHEN
     Indication: Pain
  3. ESOMEPRAZOLE [Suspect]
     Active Substance: ESOMEPRAZOLE
     Indication: Dyspepsia
     Dosage: 1 DF, QD
  4. NICOTINE [Suspect]
     Active Substance: NICOTINE
     Indication: Tobacco user
     Dosage: 1 DF, QD
  5. ATORVASTATIN [Suspect]
     Active Substance: ATORVASTATIN
     Indication: Hypercholesterolaemia
     Dosage: 1 DF, QD
  6. CELECOXIB [Suspect]
     Active Substance: CELECOXIB
     Indication: Product used for unknown indication
     Dosage: UNK
  7. CICLESONIDE [Suspect]
     Active Substance: CICLESONIDE
     Indication: Asthma
     Dosage: 1 PUFF(S), BID
  8. CLOZAPINE [Suspect]
     Active Substance: CLOZAPINE
     Indication: Schizophrenia
     Dosage: 2 DF, BID
  9. CHOLESTYRAMINE [Suspect]
     Active Substance: CHOLESTYRAMINE
     Indication: Prophylaxis
     Dosage: 1 DF, BID
  10. DOCUSATE [Suspect]
     Active Substance: DOCUSATE
     Indication: Constipation
     Dosage: UNK
  11. FENOFIBRATE [Suspect]
     Active Substance: FENOFIBRATE
     Indication: Prophylaxis
     Dosage: 1 DF, QD
  12. FENOFIBRATE [Suspect]
     Active Substance: FENOFIBRATE
     Indication: Hypercholesterolaemia
  13. LOPERAMIDE HYDROCHLORIDE [Suspect]
     Active Substance: LOPERAMIDE HYDROCHLORIDE
     Indication: Prophylaxis
     Dosage: 1 DF, TID
  14. OXYCODONE HYDROCHLORIDE [Suspect]
     Active Substance: OXYCODONE HYDROCHLORIDE
     Indication: Product used for unknown indication
     Dosage: UNK
  15. PREDNISOLONE [Suspect]
     Active Substance: PREDNISOLONE
     Indication: Asthma
     Dosage: 1 DF, QD
  16. PREGABALIN [Suspect]
     Active Substance: PREGABALIN
     Indication: Prophylaxis
     Dosage: 1 DF, BID
  17. VENTOLIN [Suspect]
     Active Substance: ALBUTEROL SULFATE
     Indication: Asthma
     Dosage: UNK

REACTIONS (11)
  - Neutropenia [Unknown]
  - Hypokalaemia [Unknown]
  - Dyspnoea [Unknown]
  - Cough [Unknown]
  - Headache [Unknown]
  - Decreased appetite [Unknown]
  - Musculoskeletal chest pain [Unknown]
  - Oxygen saturation decreased [Unknown]
  - Wheezing [Unknown]
  - Oropharyngeal pain [Unknown]
  - Constipation [Unknown]
